FAERS Safety Report 5718956-3 (Version None)
Quarter: 2008Q2

REPORT INFORMATION
  Report Type: 
  Country: None (occurrence: None)
  Receive Date: 20080425
  Receipt Date: 20080415
  Transmission Date: 20081010
  Serious: Yes (Hospitalization, Other)
  Sender: FDA-Public Use
  Company Number: US-ABBOTT-08P-163-0447544-00

PATIENT
  Sex: Female
  Weight: 78.088 kg

DRUGS (4)
  1. HUMIRA [Suspect]
     Indication: RHEUMATOID ARTHRITIS
     Route: 058
     Dates: start: 20030101, end: 20070301
  2. METHOTREXATE [Concomitant]
     Indication: DRUG USE FOR UNKNOWN INDICATION
     Dosage: 5 TABS 1 IN 1 WEEKS
     Route: 048
  3. FOLIC ACID [Concomitant]
     Indication: DRUG USE FOR UNKNOWN INDICATION
     Route: 048
  4. PREDNISONE [Concomitant]
     Indication: RHEUMATOID ARTHRITIS
     Route: 048

REACTIONS (9)
  - ANAEMIA [None]
  - APPENDICECTOMY [None]
  - ATRIAL SEPTAL DEFECT [None]
  - CATHETER SITE INFECTION [None]
  - INFLUENZA [None]
  - PNEUMONIA BACTERIAL [None]
  - PULMONARY EMBOLISM [None]
  - SLEEP APNOEA SYNDROME [None]
  - TRANSIENT ISCHAEMIC ATTACK [None]
